FAERS Safety Report 18502351 (Version 1)
Quarter: 2020Q4

REPORT INFORMATION
  Report Type: Other
  Country: US (occurrence: US)
  Receive Date: 20201113
  Receipt Date: 20201113
  Transmission Date: 20210114
  Serious: No
  Sender: FDA-Public Use
  Company Number: US-LEADIANT BIOSCIENCES INC-2020STPI000354

PATIENT
  Sex: Female

DRUGS (2)
  1. CYSTARAN [Suspect]
     Active Substance: CYSTEAMINE HYDROCHLORIDE
     Indication: CYSTINOSIS
     Dosage: EVERY HOUR WHILE AWAKE
     Route: 047
     Dates: start: 20200307
  2. CYSTAGON [Concomitant]
     Active Substance: CYSTEAMINE BITARTRATE

REACTIONS (2)
  - Product dose omission issue [None]
  - Photophobia [Not Recovered/Not Resolved]
